FAERS Safety Report 4297500-4 (Version None)
Quarter: 2004Q1

REPORT INFORMATION
  Report Type: 
  Country: None (occurrence: None)
  Receive Date: 20040213
  Receipt Date: 20040206
  Transmission Date: 20041129
  Serious: Yes (Life-Threatening)
  Sender: FDA-Public Use
  Company Number: TCI2004A00277

PATIENT
  Age: 61 Year
  Sex: Male

DRUGS (3)
  1. ACTOS [Suspect]
     Indication: DIABETES MELLITUS NON-INSULIN-DEPENDENT
     Dosage: 30 MG (30 MG, 1 D)
     Route: 048
     Dates: start: 20000331
  2. BASEN             (VOGLIBOSE) [Concomitant]
     Route: 048
  3. GLYBURIDE [Concomitant]

REACTIONS (4)
  - COLD SWEAT [None]
  - FEELING ABNORMAL [None]
  - INCONTINENCE [None]
  - MYOCARDIAL INFARCTION [None]
